FAERS Safety Report 9822088 (Version 2)
Quarter: 2014Q1

REPORT INFORMATION
  Report Type: Spontaneous
  Country: CA (occurrence: CA)
  Receive Date: 20140116
  Receipt Date: 20140116
  Transmission Date: 20141002
  Serious: Yes (Hospitalization)
  Sender: FDA-Public Use
  Company Number: PHHY2013CA149171

PATIENT
  Age: 83 Year
  Sex: Female

DRUGS (29)
  1. METOPROLOL [Suspect]
     Indication: CORONARY ARTERY DISEASE
     Dosage: 50 MG, PER DAY
  2. METOPROLOL [Suspect]
     Indication: CORONARY ARTERY BYPASS
     Dosage: 25 MG, QD
  3. AMLODIPINE [Suspect]
     Indication: HYPERTENSION
     Dosage: 2.5 MG, BID
  4. AMLODIPINE [Suspect]
     Dosage: 2.5 MG, DAILY
  5. RAMIPRIL [Suspect]
     Indication: HYPERTENSION
     Dosage: 5 MG, QD
  6. GLYCERYL TRINITRATE [Suspect]
     Indication: ANGINA PECTORIS
     Dosage: 0.4 MG, BID (PATCH)
     Route: 062
  7. GLYCERYL TRINITRATE [Suspect]
     Dosage: 0.4 MG, QD
  8. ESCITALOPRAM [Suspect]
     Indication: DEPRESSION
     Dosage: 10 MG, QD
  9. ESCITALOPRAM [Suspect]
     Indication: ANXIETY
  10. ZOPICLONE [Suspect]
     Indication: INSOMNIA
     Dosage: 5 MG, QD
  11. ZOPICLONE [Suspect]
     Dosage: 2.5 MG, QD
  12. FUROSEMIDE [Suspect]
     Dosage: 40 MG, QD
  13. FUROSEMIDE [Suspect]
     Dosage: 20 MG, DAILY
  14. OXAZEPAM [Suspect]
     Indication: ANXIETY
     Dosage: 10 MG, BID
  15. CODEINE PHOSPHATE [Suspect]
     Indication: PAIN
     Dosage: 30 MG, BID
  16. CODEINE PHOSPHATE [Suspect]
     Dosage: 30 MG, TID
  17. CLOPIDOGREL [Concomitant]
     Indication: CORONARY ARTERY DISEASE
     Dosage: 75 MG, QD
  18. CLOPIDOGREL [Concomitant]
     Indication: CORONARY ARTERY BYPASS
  19. CLOPIDOGREL [Concomitant]
     Indication: CEREBROVASCULAR ACCIDENT
  20. ATORVASTATIN [Concomitant]
     Indication: CORONARY ARTERY DISEASE
     Dosage: 80 MG, QD
  21. ATORVASTATIN [Concomitant]
     Indication: CORONARY ARTERY BYPASS
  22. VITAMIN D [Concomitant]
     Indication: OSTEOPOROSIS
     Dosage: 1000 IU, UNK
  23. VITAMIN D [Concomitant]
     Dosage: 1000 IU, TID
  24. ACETAMINOPHEN [Concomitant]
     Indication: PAIN
     Dosage: 500 MG, BID
  25. ACETAMINOPHEN [Concomitant]
     Dosage: 500 MG, QID
  26. POLYETHYLENE GLYCOL [Concomitant]
     Indication: EYE LUBRICATION THERAPY
  27. PURE VITAMIN C [Concomitant]
  28. RABEPRAZOLE [Concomitant]
     Dosage: 10 MG, PER DAY, FOR 2 WEEKS
  29. PANTOPRAZOLE [Concomitant]
     Indication: NAUSEA
     Dosage: 40 MG, QD

REACTIONS (14)
  - Fall [Recovering/Resolving]
  - Orthostatic hypotension [Recovering/Resolving]
  - Sleep disorder [Recovering/Resolving]
  - Mobility decreased [Recovering/Resolving]
  - Bradycardia [Unknown]
  - Pain [Recovering/Resolving]
  - Panic attack [Unknown]
  - Hypotension [Recovering/Resolving]
  - Headache [Unknown]
  - Balance disorder [Recovering/Resolving]
  - Dizziness [Recovering/Resolving]
  - Abdominal pain upper [Recovering/Resolving]
  - Nausea [Unknown]
  - Drug ineffective [Unknown]
